FAERS Safety Report 15297400 (Version 2)
Quarter: 2018Q3

REPORT INFORMATION
  Report Type: Spontaneous
  Country: CA (occurrence: CA)
  Receive Date: 20180820
  Receipt Date: 20180830
  Transmission Date: 20181010
  Serious: Yes (Life-Threatening, Hospitalization, Other)
  Sender: FDA-Public Use
  Company Number: CA-SEATTLE GENETICS-2018SGN00270

PATIENT
  Age: 23 Year
  Sex: Female

DRUGS (27)
  1. CIPRO [Concomitant]
     Active Substance: CIPROFLOXACIN HYDROCHLORIDE
     Dosage: 750 MG, UNK
     Route: 048
     Dates: start: 20180122, end: 20180206
  2. LORAZEPAM. [Concomitant]
     Active Substance: LORAZEPAM
     Dosage: 0.5 MG? 1 MG Q 6HR PRN
     Route: 048
  3. METOPROLOL. [Concomitant]
     Active Substance: METOPROLOL
     Dosage: 12.5 MG, UNK
     Route: 048
  4. CEFTRIAXONE. [Concomitant]
     Active Substance: CEFTRIAXONE
     Dosage: 2 G, SINGLE
     Route: 042
     Dates: start: 20180119, end: 20180119
  5. LOPERAMIDE [Concomitant]
     Active Substance: LOPERAMIDE
     Dosage: 2MG AFTER EACH LOOSE BOWEL MOVEMENT IF NEEDED
     Route: 048
  6. CEFTAZIDIME. [Concomitant]
     Active Substance: CEFTAZIDIME
     Dosage: 2 G, Q8HR
     Route: 042
     Dates: start: 20180120, end: 20180122
  7. DIMENHYDRINATE. [Concomitant]
     Active Substance: DIMENHYDRINATE
     Dosage: 25?50 MG Q6HR PRN
  8. MAGNESIUM OXIDE. [Concomitant]
     Active Substance: MAGNESIUM OXIDE
     Dosage: 420 MG, UNK
     Route: 048
  9. FRAGMIN [Concomitant]
     Active Substance: DALTEPARIN SODIUM
     Dosage: 12500 UNITS QD
  10. ADCETRIS [Suspect]
     Active Substance: BRENTUXIMAB VEDOTIN
     Indication: HODGKIN^S DISEASE
     Dosage: 1.8 MG/KG, Q21D
     Route: 042
     Dates: start: 20171227, end: 20180129
  11. DEXAMETHASONE. [Concomitant]
     Active Substance: DEXAMETHASONE
     Dosage: 6 MG, Q6HR
     Route: 042
  12. GANCICLOVIR. [Concomitant]
     Active Substance: GANCICLOVIR
     Dosage: 360 MG, UNK
     Route: 042
     Dates: start: 20180110, end: 20180116
  13. HYDROMORPHONE [Concomitant]
     Active Substance: HYDROMORPHONE
     Dosage: 1?2 MG PO Q4H PRN OR 0.5 MG IV Q4HR PRN
     Route: 048
  14. ONDANSETRON [Concomitant]
     Active Substance: ONDANSETRON
     Dosage: 4 MG, PRN
     Route: 042
  15. TPN [Concomitant]
     Active Substance: AMINO ACIDS\DEXTROSE\ELECTROLYTES NOS\SOYBEAN OIL
     Dosage: 18 HOURS A DAY VIA CENTRAL LINE QD
  16. CANNABIS [Concomitant]
     Active Substance: CANNABIS SATIVA SUBSP. INDICA TOP
     Route: 048
  17. OMEGA?3 FATTY ACIDS [Concomitant]
     Active Substance: OMEGA-3 FATTY ACIDS
  18. DALTEPARIN [Concomitant]
     Active Substance: DALTEPARIN
     Dosage: 12,500 UNITS DAILY
     Route: 058
  19. POLYETHYLENE GLYCOL 3350. [Concomitant]
     Active Substance: POLYETHYLENE GLYCOL 3350
     Dosage: 17 G, UNK
     Route: 048
  20. ZOPICLONE [Concomitant]
     Active Substance: ZOPICLONE
     Dosage: 3.75?7.5 MG QHS PRN
     Route: 048
  21. VITAMIN B12 [Concomitant]
     Active Substance: CYANOCOBALAMIN
     Dosage: 1200 ?G, UNK
     Route: 048
  22. DOCUSATE SODIUM. [Concomitant]
     Active Substance: DOCUSATE SODIUM
     Dosage: 100 MG, BID
     Route: 048
  23. LEVETIRACETAM. [Concomitant]
     Active Substance: LEVETIRACETAM
     Dosage: 1500 MG, UNK
     Route: 048
  24. PHENYTOIN. [Concomitant]
     Active Substance: PHENYTOIN
     Dosage: 300?350 MG DAILY
     Route: 048
     Dates: start: 20180107, end: 20180121
  25. POTASSIUM CHLORIDE. [Concomitant]
     Active Substance: POTASSIUM CHLORIDE
     Dosage: 1200 MEQ, SINGLE
     Route: 048
  26. ACETAMINOPHEN. [Concomitant]
     Active Substance: ACETAMINOPHEN
     Dosage: 325?650 MG Q4H PRN
     Route: 048
  27. MEROPENEM. [Concomitant]
     Active Substance: MEROPENEM
     Dosage: 1 G, Q8HR
     Route: 042
     Dates: start: 20180122, end: 20180123

REACTIONS (8)
  - Psychogenic seizure [Unknown]
  - Muscular weakness [Unknown]
  - Fall [Recovered/Resolved]
  - Limbic encephalitis [Unknown]
  - Pleural effusion [Unknown]
  - Tooth fracture [Unknown]
  - Neuropathy peripheral [Unknown]
  - Anaphylactic reaction [Recovered/Resolved]

NARRATIVE: CASE EVENT DATE: 20180102
